FAERS Safety Report 6946055-1 (Version None)
Quarter: 2010Q3

REPORT INFORMATION
  Report Type: 
  Country: None (occurrence: None)
  Receive Date: 20100827
  Receipt Date: 20100823
  Transmission Date: 20110219
  Serious: Yes (Life-Threatening)
  Sender: FDA-Public Use
  Company Number: JP-EISAI INC.-E2090-01291-SPO-JP

PATIENT
  Sex: Male

DRUGS (19)
  1. EXCEGRAN [Suspect]
     Dosage: UNKNOWN
     Route: 048
     Dates: end: 20100501
  2. TEGRETOL [Suspect]
     Indication: PRODUCT USED FOR UNKNOWN INDICATION
     Dosage: UNKNOWN
     Dates: end: 20100501
  3. FLAGYL [Suspect]
     Indication: PRODUCT USED FOR UNKNOWN INDICATION
     Dosage: UNKNOWN
     Dates: end: 20100501
  4. ZYVOX [Suspect]
     Indication: NEOPLASM
     Dosage: UNKNOWN
     Dates: end: 20100507
  5. MEROPENEM [Suspect]
     Indication: NEOPLASM
     Dates: end: 20100507
  6. MEROPENEM [Suspect]
     Indication: URINARY TRACT INFECTION
     Dosage: UNKNOWN
     Dates: start: 20100614, end: 20100621
  7. PREDNISONE [Concomitant]
     Dosage: UNKNOWN
  8. THRADIN [Concomitant]
     Dosage: UNKNOWN
     Route: 048
  9. MALFA [Concomitant]
     Dosage: UNKNOWN
     Route: 048
  10. SEPAMIT-R [Concomitant]
     Dosage: UNKNOWN
     Route: 048
  11. ASPIRIN [Concomitant]
     Dosage: UNKNOWN
     Route: 048
  12. MAINTATE [Concomitant]
     Dosage: UNKNOWN
     Route: 048
  13. TAGAMET [Concomitant]
     Dosage: UNKNOWN
     Route: 048
  14. ONON [Concomitant]
     Dosage: UNKNOWN
     Route: 048
  15. GASTER [Concomitant]
     Dosage: UNKNOWN
     Route: 048
  16. SEIBULE [Concomitant]
     Dosage: UNKNOWN
     Route: 048
  17. MIYA BM [Concomitant]
     Dosage: UNKNOWN
     Route: 048
  18. COLONEL [Concomitant]
     Dosage: UNKNOWN
     Route: 048
  19. GABAPEN [Concomitant]
     Dosage: UNKNOWN
     Route: 048

REACTIONS (1)
  - INTERSTITIAL LUNG DISEASE [None]
